FAERS Safety Report 5711954-5 (Version None)
Quarter: 2008Q2

REPORT INFORMATION
  Report Type: 
  Country: None (occurrence: None)
  Receive Date: 20080421
  Receipt Date: 20080414
  Transmission Date: 20081010
  Serious: Yes (Hospitalization)
  Sender: FDA-Public Use
  Company Number: US-BAXTER-2008BH003342

PATIENT
  Age: 55 Year
  Sex: Male
  Weight: 83 kg

DRUGS (5)
  1. HEPARIN SODIUM [Suspect]
     Indication: PROPHYLAXIS
     Route: 040
     Dates: start: 20050101, end: 20070701
  2. HEPARIN SODIUM [Suspect]
     Route: 040
     Dates: start: 20070701, end: 20080101
  3. PRILOSEC [Concomitant]
     Indication: DRUG USE FOR UNKNOWN INDICATION
     Dosage: DOSE UNIT:UNKNOWN
     Route: 065
  4. COUMADIN [Concomitant]
     Indication: DRUG USE FOR UNKNOWN INDICATION
     Dosage: DOSE UNIT:UNKNOWN
     Route: 065
     Dates: start: 20070701
  5. CLONAZEPAM [Concomitant]
     Dosage: DOSE UNIT:UNKNOWN
     Route: 065

REACTIONS (8)
  - ABDOMINAL PAIN [None]
  - ABDOMINAL PAIN UPPER [None]
  - ATRIAL TACHYCARDIA [None]
  - BLOOD PRESSURE DECREASED [None]
  - NAUSEA [None]
  - PULMONARY OEDEMA [None]
  - SHOCK [None]
  - VOMITING [None]
